FAERS Safety Report 13927485 (Version 1)
Quarter: 2017Q3

REPORT INFORMATION
  Report Type: Spontaneous
  Country: US (occurrence: US)
  Receive Date: 20170901
  Receipt Date: 20170901
  Transmission Date: 20171127
  Serious: No
  Sender: FDA-Public Use
  Company Number: US-ASTRAZENECA-2017SE87194

PATIENT
  Age: 58 Year
  Sex: Female
  Weight: 117.9 kg

DRUGS (6)
  1. TUDORZA PRESSAIR [Suspect]
     Active Substance: ACLIDINIUM BROMIDE
     Indication: CHRONIC OBSTRUCTIVE PULMONARY DISEASE
     Dosage: 400 MCG, 1 PUFF TWICE A DAY
     Route: 055
     Dates: start: 2016
  2. TUDORZA PRESSAIR [Suspect]
     Active Substance: ACLIDINIUM BROMIDE
     Indication: CHRONIC OBSTRUCTIVE PULMONARY DISEASE
     Dosage: 2 PUFFS ONE TIME
     Route: 055
     Dates: start: 201708
  3. LISINOPRIL. [Suspect]
     Active Substance: LISINOPRIL
     Indication: BLOOD PRESSURE ABNORMAL
     Route: 048
  4. MELOXICAM. [Concomitant]
     Active Substance: MELOXICAM
     Indication: INFLAMMATION
     Route: 048
  5. MELOXICAM. [Concomitant]
     Active Substance: MELOXICAM
     Indication: DIVERTICULITIS
     Route: 048
  6. METHOCARBAMOL. [Concomitant]
     Active Substance: METHOCARBAMOL
     Indication: MUSCLE RELAXANT THERAPY
     Route: 048

REACTIONS (9)
  - Malaise [Unknown]
  - Musculoskeletal pain [Unknown]
  - Device malfunction [Unknown]
  - Drug dose omission [Recovered/Resolved]
  - Product taste abnormal [Unknown]
  - Asthma [Unknown]
  - Diverticulitis [Unknown]
  - Intentional device misuse [Recovered/Resolved]
  - Underdose [Unknown]

NARRATIVE: CASE EVENT DATE: 2017
